FAERS Safety Report 24396875 (Version 1)
Quarter: 2024Q4

REPORT INFORMATION
  Report Type: Spontaneous
  Country: US (occurrence: US)
  Receive Date: 20241004
  Receipt Date: 20241004
  Transmission Date: 20250115
  Serious: No
  Sender: MERCK
  Company Number: US-009507513-2409USA010159

PATIENT
  Age: 94 Year
  Sex: Female

DRUGS (6)
  1. KEYTRUDA [Suspect]
     Active Substance: PEMBROLIZUMAB
     Indication: Bladder cancer
     Dosage: 200 MILLIGRAM, EVERY 3 WEEKS
     Route: 042
     Dates: start: 20000809
  2. PADCEV [Suspect]
     Active Substance: ENFORTUMAB VEDOTIN-EJFV
     Indication: Bladder cancer
     Dosage: 36 MG /DAY 1Q DAY 8 EVERY 21 DAYS
     Route: 042
  3. LISINOPRIL [Concomitant]
     Active Substance: LISINOPRIL
  4. ATROPINE\DIPHENOXYLATE [Concomitant]
     Active Substance: ATROPINE\DIPHENOXYLATE
  5. MIRABEGRON [Concomitant]
     Active Substance: MIRABEGRON
  6. ROSUVASTATIN [Concomitant]
     Active Substance: ROSUVASTATIN

REACTIONS (1)
  - Diarrhoea [Unknown]

NARRATIVE: CASE EVENT DATE: 20240926
